FAERS Safety Report 9319849 (Version 1)
Quarter: 2013Q2

REPORT INFORMATION
  Report Type: Spontaneous
  Country: US (occurrence: US)
  Receive Date: 20130530
  Receipt Date: 20130530
  Transmission Date: 20140414
  Serious: No
  Sender: FDA-Public Use
  Company Number: US-UPSHER-SMITH LABORATORIES, INC.-12000523

PATIENT
  Age: 95 Year
  Sex: Female
  Weight: 64.85 kg

DRUGS (11)
  1. POTASSIUM CHLORIDE [Suspect]
     Indication: MINERAL SUPPLEMENTATION
     Dosage: 20 MEQ, QD
     Route: 048
     Dates: start: 201202, end: 20120426
  2. ASPIRIN [Concomitant]
     Indication: PRODUCT USED FOR UNKNOWN INDICATION
     Dosage: 81 MG, QD
  3. METOPROLOL [Concomitant]
     Indication: HYPERTENSION
     Dosage: UNK
  4. LASIX                              /00032601/ [Concomitant]
     Indication: OEDEMA PERIPHERAL
     Dosage: UNK
  5. MULTIVITAMIN                       /01229101/ [Concomitant]
     Indication: VITAMIN SUPPLEMENTATION
     Dosage: UNK
  6. EYE VITAMIN [Concomitant]
     Indication: VITAMIN SUPPLEMENTATION
     Dosage: UNK, BID
  7. LOVASTATIN [Concomitant]
     Indication: BLOOD CHOLESTEROL INCREASED
     Dosage: UNK
  8. VITAMIN D                          /00107901/ [Concomitant]
     Indication: VITAMIN SUPPLEMENTATION
     Dosage: UNK
  9. ISOSORBIDE MONONITRATE [Concomitant]
     Indication: CARDIAC DISORDER
     Dosage: UNK, BID
     Route: 048
  10. PRILOSEC                           /00661201/ [Concomitant]
     Indication: OESOPHAGEAL DISORDER
     Dosage: UNK
  11. ENSURE                             /06184901/ [Concomitant]
     Indication: SUPPLEMENTATION THERAPY
     Dosage: UNK

REACTIONS (4)
  - Hallucination [Not Recovered/Not Resolved]
  - Depression [Not Recovered/Not Resolved]
  - Confusional state [Not Recovered/Not Resolved]
  - Insomnia [Not Recovered/Not Resolved]
